FAERS Safety Report 15066025 (Version 1)
Quarter: 2018Q2

REPORT INFORMATION
  Report Type: Spontaneous
  Country: US (occurrence: US)
  Receive Date: 20180626
  Receipt Date: 20180626
  Transmission Date: 20180711
  Serious: No
  Sender: FDA-Public Use
  Company Number: PHEH2018US023682

PATIENT
  Sex: Female

DRUGS (3)
  1. ETHAMBUTOL [Concomitant]
     Active Substance: ETHAMBUTOL HYDROCHLORIDE
     Indication: MYCOBACTERIUM AVIUM COMPLEX INFECTION
     Dosage: UNK
     Route: 065
  2. AZITHROMYCIN ANHYDROUS. [Concomitant]
     Active Substance: AZITHROMYCIN ANHYDROUS
     Indication: MYCOBACTERIUM AVIUM COMPLEX INFECTION
     Dosage: UNK
     Route: 065
  3. RIFAMPIN CAPSULES USP [Suspect]
     Active Substance: RIFAMPIN
     Indication: MYCOBACTERIUM AVIUM COMPLEX INFECTION
     Dosage: UNK
     Route: 065

REACTIONS (2)
  - Drug intolerance [Not Recovered/Not Resolved]
  - Pyrexia [Not Recovered/Not Resolved]
